FAERS Safety Report 24979052 (Version 1)
Quarter: 2025Q1

REPORT INFORMATION
  Report Type: Spontaneous
  Country: AT (occurrence: AT)
  Receive Date: 20250218
  Receipt Date: 20250218
  Transmission Date: 20250409
  Serious: Yes (Death, Other)
  Sender: TAKEDA
  Company Number: AT-TAKEDA-2024TUS100016

PATIENT
  Age: 70 Year
  Sex: Female

DRUGS (2)
  1. FRUZAQLA [Suspect]
     Active Substance: FRUQUINTINIB
     Indication: Product used for unknown indication
  2. FRUZAQLA [Suspect]
     Active Substance: FRUQUINTINIB

REACTIONS (8)
  - Death [Fatal]
  - Thrombocytopenia [Unknown]
  - Hepatic enzyme increased [Unknown]
  - Thyroid disorder [Unknown]
  - Blood alkaline phosphatase increased [Unknown]
  - Fatigue [Unknown]
  - Blood thyroid stimulating hormone increased [Unknown]
  - Proteinuria [Unknown]

NARRATIVE: CASE EVENT DATE: 20241110
